FAERS Safety Report 5499415-2 (Version None)
Quarter: 2007Q4

REPORT INFORMATION
  Report Type: 
  Country: None (occurrence: None)
  Receive Date: 20071026
  Receipt Date: 20071023
  Transmission Date: 20080405
  Serious: Yes (Other)
  Sender: FDA-Public Use
  Company Number: B0492197A

PATIENT
  Age: 74 Year
  Sex: Male

DRUGS (5)
  1. AMOXICILLIN [Suspect]
     Dosage: 1500MG PER DAY
     Route: 048
     Dates: start: 20051220, end: 20051223
  2. PARACETAMOL [Concomitant]
     Indication: PAIN
     Dosage: 2000MG PER DAY
     Route: 048
  3. RAMIPRIL [Concomitant]
     Indication: HYPERTENSION
     Dosage: 10MG PER DAY
     Route: 048
  4. MS CONTIN [Concomitant]
     Indication: PAIN
     Dosage: 30MG PER DAY
     Route: 048
  5. FRUSEMIDE [Concomitant]
     Indication: HYPERTENSION
     Dosage: 80MG PER DAY
     Route: 048

REACTIONS (2)
  - ANGER [None]
  - CRYING [None]
